FAERS Safety Report 8032455-8 (Version None)
Quarter: 2011Q4

REPORT INFORMATION
  Report Type: 
  Country: None (occurrence: None)
  Receive Date: 20111202
  Receipt Date: 20110928
  Transmission Date: 20120403
  Serious: Yes (Hospitalization)
  Sender: FDA-Public Use
  Company Number: PHEH2011US05387

PATIENT
  Sex: Male

DRUGS (2)
  1. FANAPT [Suspect]
     Indication: SCHIZOPHRENIA
  2. CLOZARIL [Suspect]

REACTIONS (1)
  - PRIAPISM [None]
